FAERS Safety Report 7932345-2 (Version None)
Quarter: 2011Q4

REPORT INFORMATION
  Report Type: 
  Country: None (occurrence: None)
  Receive Date: 20111121
  Receipt Date: 20111031
  Transmission Date: 20120403
  Serious: Yes (Other)
  Sender: FDA-Public Use
  Company Number: PL-ROCHE-1009366

PATIENT
  Age: 31 Year
  Sex: Female

DRUGS (2)
  1. SAQUINAVIR [Suspect]
     Indication: HIV INFECTION
     Route: 065
  2. NELFINAVIR MESYLATE [Suspect]
     Indication: HIV INFECTION
     Route: 065

REACTIONS (1)
  - OSTEOPOROSIS [None]
